FAERS Safety Report 9034327 (Version 1)
Quarter: 2013Q1

REPORT INFORMATION
  Report Type: Spontaneous
  Country: US (occurrence: None)
  Receive Date: 20130114
  Receipt Date: 20130114
  Transmission Date: 20140127
  Serious: Yes (Life-Threatening, Hospitalization, Other)
  Sender: FDA-Public Use
  Company Number: ADR-2013-00031

PATIENT
  Age: 64 Year
  Sex: Female

DRUGS (1)
  1. LIORESAL [Suspect]
     Indication: MUSCLE SPASTICITY

REACTIONS (11)
  - Hunger [None]
  - Unresponsive to stimuli [None]
  - Hypotension [None]
  - Overdose [None]
  - Hypertonia [None]
  - Clonus [None]
  - Mental status changes [None]
  - Muscle spasticity [None]
  - Dyspnoea [None]
  - Hypotonia [None]
  - Oxygen saturation decreased [None]
